FAERS Safety Report 8884632 (Version 5)
Quarter: 2012Q4

REPORT INFORMATION
  Report Type: Report from Study
  Country: US (occurrence: US)
  Receive Date: 20121102
  Receipt Date: 20121211
  Transmission Date: 20130627
  Serious: Yes (Hospitalization)
  Sender: FDA-Public Use
  Company Number: US-PURDUE-USA-2012-0095126

PATIENT
  Age: 14 Year
  Sex: Female
  Weight: 55.6 kg

DRUGS (17)
  1. OXY CR [Suspect]
     Indication: PAIN
     Dosage: 20 mg, UNK
     Route: 048
     Dates: start: 20120821
  2. OXYCODONE HCL IMMEDIATE RELEASE (91-490) [Concomitant]
     Indication: PAIN
     Dosage: 5 mg, q6h
     Route: 048
     Dates: start: 20121010
  3. COLACE CAPSULES [Concomitant]
     Indication: PRODUCT USED FOR UNKNOWN INDICATION
     Dosage: 100 mg, bid
     Route: 048
  4. MOTRIN [Concomitant]
     Indication: PAIN
     Dosage: 200 mg, q8h
     Route: 048
  5. HYDREA [Concomitant]
     Indication: PAIN IN EXTREMITY
     Dosage: 500 mg, daily
     Route: 048
     Dates: start: 20120905, end: 20121007
  6. HYDREA [Concomitant]
     Indication: PAIN
     Dosage: 1000 mg, PM
     Route: 048
     Dates: start: 20121008, end: 20121007
  7. TYLENOL /00020001/ [Concomitant]
     Indication: PAIN
     Dosage: 2 tablet, q6h
     Route: 048
  8. ATIVAN [Concomitant]
     Indication: PAIN IN EXTREMITY
     Dosage: 0.5 mg, q12h
     Route: 048
     Dates: start: 2010
  9. ATIVAN [Concomitant]
     Indication: ANXIETY
  10. ATIVAN [Concomitant]
     Indication: PAIN
  11. MIRALAX                            /00754501/ [Concomitant]
     Indication: PRODUCT USED FOR UNKNOWN INDICATION
     Dosage: 17 g, bid
     Route: 048
  12. VITAMIN D /00107901/ [Concomitant]
     Indication: PRODUCT USED FOR UNKNOWN INDICATION
     Dosage: 50000 unit, monthly
     Route: 048
  13. GABAPENTIN [Concomitant]
     Indication: PAIN
     Dosage: 600 mg, tid
     Route: 048
     Dates: start: 2010
  14. INFLUENZA VACCINE [Concomitant]
     Indication: PROPHYLAXIS
     Dosage: 0.5 mg, UNK
     Route: 030
     Dates: start: 20121003, end: 20121003
  15. DEXTROSE W/POTASSIUM CHLORIDE AND NACL [Concomitant]
     Indication: PROPHYLAXIS
     Dosage: 55%/20meq/0.45%
     Route: 042
     Dates: start: 20121101
  16. ORAPRED [Concomitant]
     Indication: DYSPNOEA
     Dosage: 30 mg, bid
     Route: 048
     Dates: start: 20121022, end: 20121027
  17. ORAPRED [Concomitant]
     Indication: WHEEZING

REACTIONS (1)
  - Sickle cell anaemia with crisis [Recovered/Resolved]
